FAERS Safety Report 9375451 (Version 1)
Quarter: 2013Q2

REPORT INFORMATION
  Report Type: Spontaneous
  Country: JP (occurrence: JP)
  Receive Date: 20130628
  Receipt Date: 20130628
  Transmission Date: 20140414
  Serious: Yes (Other)
  Sender: FDA-Public Use
  Company Number: JP-GLAXOSMITHKLINE-B0595600A

PATIENT
  Age: 88 Year
  Sex: Male

DRUGS (2)
  1. PAXIL [Suspect]
     Indication: PRODUCT USED FOR UNKNOWN INDICATION
     Dosage: 10MG PER DAY
     Route: 048
     Dates: start: 20090828, end: 20090925
  2. HOKUNALIN [Concomitant]
     Route: 062
     Dates: start: 20090420

REACTIONS (1)
  - Depression [Recovered/Resolved]
